FAERS Safety Report 7042534-X (Version None)
Quarter: 2010Q4

REPORT INFORMATION
  Report Type: 
  Country: None (occurrence: None)
  Receive Date: 20101013
  Receipt Date: 20091030
  Transmission Date: 20110411
  Serious: No
  Sender: FDA-Public Use
  Company Number: US-ASTRAZENECA-2009SE23882

PATIENT
  Age: 81 Year
  Sex: Male
  Weight: 68 kg

DRUGS (8)
  1. SYMBICORT [Suspect]
     Indication: CHRONIC OBSTRUCTIVE PULMONARY DISEASE
     Dosage: 4 PUFFS
     Route: 055
     Dates: start: 20091001, end: 20091024
  2. PROVENTIL [Concomitant]
     Indication: CHRONIC OBSTRUCTIVE PULMONARY DISEASE
  3. LIPITOR [Concomitant]
  4. HYZAAR [Concomitant]
  5. NEXIUM [Concomitant]
  6. AMLODIPINE [Concomitant]
  7. CHLORDIAZEPOXIDE CLIDIINUM [Concomitant]
  8. FLUTICASONE NASAL SPRAY [Concomitant]

REACTIONS (2)
  - TOOTH DISORDER [None]
  - UPPER RESPIRATORY TRACT INFECTION [None]
